FAERS Safety Report 7817362-5 (Version None)
Quarter: 2011Q4

REPORT INFORMATION
  Report Type: 
  Country: None (occurrence: None)
  Receive Date: 20111017
  Receipt Date: 20111005
  Transmission Date: 20120403
  Serious: Yes (Other)
  Sender: FDA-Public Use
  Company Number: CH-NOVOPROD-337054

PATIENT

DRUGS (5)
  1. NORVASC [Concomitant]
     Dosage: ORAL
     Route: 048
  2. LESCOL [Concomitant]
     Dosage: ORAL
     Route: 048
  3. JANUMET [Concomitant]
     Dosage: ORAL
     Route: 048
  4. VICTOZA [Suspect]
     Indication: TYPE 2 DIABETES MELLITUS
  5. NEBILET PLUS [Concomitant]
     Dosage: ORAL
     Route: 048

REACTIONS (1)
  - ARTHRALGIA [None]
